FAERS Safety Report 10578818 (Version 2)
Quarter: 2014Q4

REPORT INFORMATION
  Report Type: Report from Study
  Country: JP (occurrence: JP)
  Receive Date: 20141112
  Receipt Date: 20141112
  Transmission Date: 20150529
  Serious: Yes (Other)
  Sender: FDA-Public Use
  Company Number: PHHY2012JP006741

PATIENT
  Age: 67 Year
  Sex: Male

DRUGS (3)
  1. DASATINIB [Suspect]
     Active Substance: DASATINIB
     Dosage: 4 MG, UNK
     Route: 065
  2. AMN107 [Suspect]
     Active Substance: NILOTINIB
     Indication: CHRONIC MYELOID LEUKAEMIA
     Dosage: 400 MG DAILY
     Route: 048
     Dates: start: 20100107, end: 20100422
  3. AMN107 [Suspect]
     Active Substance: NILOTINIB
     Dosage: 800 MG, DAILY
     Route: 048
     Dates: start: 20100423, end: 20100512

REACTIONS (3)
  - Hyperglycaemia [Recovered/Resolved]
  - Lipase increased [Recovering/Resolving]
  - Drug ineffective [Unknown]

NARRATIVE: CASE EVENT DATE: 20100218
